FAERS Safety Report 8212226-X (Version None)
Quarter: 2012Q1

REPORT INFORMATION
  Report Type: 
  Country: None (occurrence: None)
  Receive Date: 20120315
  Receipt Date: 20120306
  Transmission Date: 20120608
  Serious: Yes (Hospitalization)
  Sender: FDA-Public Use
  Company Number: US-ACTELION-A-NJ2012-60546

PATIENT

DRUGS (2)
  1. EPOPROSTENOL SODIUM [Suspect]
     Indication: PULMONARY ARTERIAL HYPERTENSION
     Dosage: 14 NG/KG, PER MIN
     Route: 041
     Dates: start: 20100727
  2. ASPIRIN [Concomitant]

REACTIONS (4)
  - CONDITION AGGRAVATED [None]
  - PELVIC FRACTURE [None]
  - PULMONARY ARTERIAL HYPERTENSION [None]
  - HIP FRACTURE [None]
